FAERS Safety Report 8112144 (Version 2)
Quarter: 2013Q4

REPORT INFORMATION
  Report Type: Spontaneous
  Country: US (occurrence: US)
  Receive Date: 20110830
  Receipt Date: 20131118
  Transmission Date: 20140711
  Serious: No
  Sender: FDA-Public Use
  Company Number: US-JNJFOC-20110809531

PATIENT
  Sex: Male
  Weight: 117.94 kg

DRUGS (7)
  1. DURAGESIC [Suspect]
     Indication: PRODUCT USED FOR UNKNOWN INDICATION
     Route: 062
     Dates: start: 2008
  2. DURAGESIC [Suspect]
     Indication: PAIN
     Route: 062
  3. DURAGESIC [Suspect]
     Indication: PAIN
     Route: 062
     Dates: start: 2010
  4. OPANA ER [Concomitant]
     Indication: PAIN
     Route: 048
     Dates: start: 201102
  5. OPANA [Concomitant]
     Indication: PAIN
     Route: 048
     Dates: start: 201102
  6. LYRICA [Concomitant]
     Indication: NEURALGIA
     Route: 048
     Dates: start: 2006
  7. ZEGERID [Concomitant]
     Indication: GASTROOESOPHAGEAL REFLUX DISEASE
     Route: 048
     Dates: start: 2010

REACTIONS (12)
  - Hypersensitivity [Not Recovered/Not Resolved]
  - Application site reaction [Not Recovered/Not Resolved]
  - Skin injury [Not Recovered/Not Resolved]
  - Dry skin [Not Recovered/Not Resolved]
  - Skin exfoliation [Not Recovered/Not Resolved]
  - Withdrawal syndrome [Not Recovered/Not Resolved]
  - Somnolence [Not Recovered/Not Resolved]
  - Inappropriate schedule of drug administration [Not Recovered/Not Resolved]
  - Drug prescribing error [Unknown]
  - Therapeutic response decreased [Recovered/Resolved]
  - Drug ineffective [Not Recovered/Not Resolved]
  - Product adhesion issue [Unknown]
